FAERS Safety Report 23205355 (Version 2)
Quarter: 2023Q4

REPORT INFORMATION
  Report Type: Spontaneous
  Country: US (occurrence: US)
  Receive Date: 20231120
  Receipt Date: 20231130
  Transmission Date: 20240109
  Serious: Yes (Other)
  Sender: FDA-Public Use
  Company Number: US-PFIZER INC-PV202300188205

PATIENT
  Age: 68 Year
  Sex: Female
  Weight: 75.737 kg

DRUGS (3)
  1. IBRANCE [Suspect]
     Active Substance: PALBOCICLIB
     Indication: Breast cancer female
     Dosage: 100 MG 3 WEEKS ON 1 WEEK OFF 28-DAY CYCLE
     Route: 048
     Dates: start: 20220308
  2. IBRANCE [Suspect]
     Active Substance: PALBOCICLIB
     Dosage: 100 MG 3 WEEKS ON 1 WEEK OFF 28-DAY CYCLE
     Route: 048
     Dates: start: 20220525
  3. ARIMIDEX [Concomitant]
     Active Substance: ANASTROZOLE
     Dosage: UNK
     Dates: start: 20220308

REACTIONS (2)
  - Neutropenia [Unknown]
  - Nasopharyngitis [Unknown]
